FAERS Safety Report 7782185-2 (Version None)
Quarter: 2011Q3

REPORT INFORMATION
  Report Type: 
  Country: None (occurrence: None)
  Receive Date: 20110927
  Receipt Date: 20110921
  Transmission Date: 20111222
  Serious: Yes (Other)
  Sender: FDA-Public Use
  Company Number: US-AMGEN-QUU407615

PATIENT
  Age: 65 Year
  Sex: Male

DRUGS (1)
  1. NPLATE [Suspect]
     Indication: IDIOPATHIC THROMBOCYTOPENIC PURPURA
     Dosage: 777 MUG, UNK
     Dates: start: 20090904, end: 20101020

REACTIONS (5)
  - PLATELET COUNT DECREASED [None]
  - EPISTAXIS [None]
  - DRUG INEFFECTIVE [None]
  - THROMBOCYTOPENIA [None]
  - BONE MARROW DISORDER [None]
